FAERS Safety Report 4288416-8 (Version None)
Quarter: 2004Q1

REPORT INFORMATION
  Report Type: 
  Country: None (occurrence: None)
  Receive Date: 20040209
  Receipt Date: 20030930
  Transmission Date: 20041129
  Serious: No
  Sender: FDA-Public Use
  Company Number: US-GLAXOSMITHKLINE-A0428113A

PATIENT
  Age: 42 Year
  Sex: Female

DRUGS (1)
  1. PAXIL [Suspect]
     Route: 048
     Dates: start: 19970101

REACTIONS (4)
  - DEPRESSION [None]
  - LIBIDO DECREASED [None]
  - MOOD ALTERED [None]
  - RELATIONSHIP BREAKDOWN [None]
